FAERS Safety Report 13768252 (Version 2)
Quarter: 2017Q3

REPORT INFORMATION
  Report Type: Spontaneous
  Country: CH (occurrence: CH)
  Receive Date: 20170719
  Receipt Date: 20170821
  Transmission Date: 20171127
  Serious: Yes (Other)
  Sender: FDA-Public Use
  Company Number: CH-TEVA-787136ISR

PATIENT
  Age: 33 Year
  Sex: Female

DRUGS (3)
  1. MEPHAQUIN [Suspect]
     Active Substance: MEFLOQUINE
     Indication: MALARIA PROPHYLAXIS
     Dosage: TOTAL DOSE TAKEN: 0.5 TABLETS
     Route: 065
  2. LEVOTHYROXINE. [Concomitant]
     Active Substance: LEVOTHYROXINE
     Indication: THYROXINE THERAPY
     Route: 065
  3. HYDROCORTISONE. [Concomitant]
     Active Substance: HYDROCORTISONE
     Indication: ADRENOCORTICAL STEROID THERAPY
     Route: 065

REACTIONS (1)
  - Cortisol deficiency [Recovered/Resolved]

NARRATIVE: CASE EVENT DATE: 201706
